FAERS Safety Report 16724496 (Version 1)
Quarter: 2019Q3

REPORT INFORMATION
  Report Type: Spontaneous
  Country: US (occurrence: US)
  Receive Date: 20190703
  Receipt Date: 20190703
  Transmission Date: 20191005
  Serious: No
  Sender: FDA-Public Use
  Company Number: None

PATIENT
  Age: 58 Year
  Sex: Female

DRUGS (1)
  1. FORTEO [Suspect]
     Active Substance: TERIPARATIDE
     Dates: start: 201806

REACTIONS (4)
  - Fracture [None]
  - Foot fracture [None]
  - Patella fracture [None]
  - Hand fracture [None]

NARRATIVE: CASE EVENT DATE: 20180703
